FAERS Safety Report 24704795 (Version 2)
Quarter: 2024Q4

REPORT INFORMATION
  Report Type: Report from Study
  Country: CA (occurrence: CA)
  Receive Date: 20241206
  Receipt Date: 20241213
  Transmission Date: 20250115
  Serious: Yes (Other)
  Sender: JOHNSON AND JOHNSON
  Company Number: CA-JNJFOC-20241027044

PATIENT
  Age: 67 Year
  Sex: Female

DRUGS (2)
  1. REMICADE [Suspect]
     Active Substance: INFLIXIMAB
     Indication: Crohn^s disease
     Route: 041
     Dates: start: 20210209
  2. REMICADE [Suspect]
     Active Substance: INFLIXIMAB
     Dosage: EXPIRY DATE: MR-2027
     Route: 041
     Dates: start: 20210209

REACTIONS (2)
  - Renal cancer [Unknown]
  - Urinary tract infection [Recovered/Resolved]

NARRATIVE: CASE EVENT DATE: 20240919
